FAERS Safety Report 16653045 (Version 1)
Quarter: 2019Q3

REPORT INFORMATION
  Report Type: Report from Study
  Country: CA (occurrence: CA)
  Receive Date: 20190731
  Receipt Date: 20190731
  Transmission Date: 20191004
  Serious: Yes (Other)
  Sender: FDA-Public Use
  Company Number: CA-TEVA-2019-CA-1084371

PATIENT
  Age: 26 Year
  Sex: Female

DRUGS (2)
  1. MYCOPHENOLIC ACID. [Suspect]
     Active Substance: MYCOPHENOLIC ACID
     Indication: IMMUNOSUPPRESSION
     Dosage: 1500 MILLIGRAM DAILY;
     Route: 048
  2. WARFARIN SODIUM. [Suspect]
     Active Substance: WARFARIN SODIUM
     Indication: IMMUNOSUPPRESSION
     Dosage: 9 MILLIGRAM DAILY;
     Route: 048

REACTIONS (4)
  - Product use in unapproved indication [Recovered/Resolved]
  - Maternal exposure during pregnancy [Recovered/Resolved]
  - Product use issue [Recovered/Resolved]
  - Abortion spontaneous [Recovered/Resolved]
